FAERS Safety Report 13175902 (Version 1)
Quarter: 2017Q1

REPORT INFORMATION
  Report Type: Spontaneous
  Country: US (occurrence: US)
  Receive Date: 20170201
  Receipt Date: 20170201
  Transmission Date: 20170428
  Serious: Yes (Other)
  Sender: FDA-Public Use
  Company Number: US-ENDO PHARMACEUTICALS INC-2017-000401

PATIENT
  Age: 60 Year
  Sex: Male
  Weight: 79.82 kg

DRUGS (1)
  1. XIAFLEX [Suspect]
     Active Substance: COLLAGENASE CLOSTRIDIUM HISTOLYTICUM
     Indication: DUPUYTREN^S CONTRACTURE
     Dosage: UNK, FIRST INJECTION, FIRST CYCLE
     Route: 026
     Dates: start: 20161105, end: 20161105

REACTIONS (5)
  - Administration site movement impairment [Not Recovered/Not Resolved]
  - Activities of daily living impaired [Not Recovered/Not Resolved]
  - Hyperaesthesia [Unknown]
  - Injection site pain [Unknown]
  - Peripheral swelling [Not Recovered/Not Resolved]

NARRATIVE: CASE EVENT DATE: 201611
